FAERS Safety Report 23871692 (Version 1)
Quarter: 2024Q2

REPORT INFORMATION
  Report Type: Spontaneous
  Country: AU (occurrence: AU)
  Receive Date: 20240520
  Receipt Date: 20240520
  Transmission Date: 20240716
  Serious: Yes (Death)
  Sender: FDA-Public Use
  Company Number: AU-ABBVIE-5708704

PATIENT
  Age: 20 Year
  Sex: Male
  Weight: 70 kg

DRUGS (1)
  1. RINVOQ [Suspect]
     Active Substance: UPADACITINIB
     Indication: Sarcoma
     Route: 048
     Dates: start: 20240208, end: 20240313

REACTIONS (2)
  - General physical health deterioration [Fatal]
  - Sarcoma metastatic [Fatal]

NARRATIVE: CASE EVENT DATE: 20240313
